FAERS Safety Report 8127965-9 (Version None)
Quarter: 2012Q1

REPORT INFORMATION
  Report Type: 
  Country: None (occurrence: None)
  Receive Date: 20120210
  Receipt Date: 20120203
  Transmission Date: 20120608
  Serious: Yes (Other)
  Sender: FDA-Public Use
  Company Number: AU-ROXANE LABORATORIES, INC.-2012-RO-00597RO

PATIENT
  Age: 47 Year
  Sex: Male

DRUGS (5)
  1. BUPRENORPHINE HCL [Suspect]
     Indication: DRUG DEPENDENCE
  2. BACLOFEN [Suspect]
  3. VENLAFAXINE [Suspect]
  4. DIAZEPAM [Suspect]
  5. BACLOFEN [Suspect]
     Indication: ALCOHOLISM
     Dosage: 30 MG

REACTIONS (1)
  - MULTIPLE DRUG OVERDOSE [None]
